FAERS Safety Report 15134862 (Version 2)
Quarter: 2018Q3

REPORT INFORMATION
  Report Type: Spontaneous
  Country: RU (occurrence: RU)
  Receive Date: 20180712
  Receipt Date: 20180828
  Transmission Date: 20181010
  Serious: Yes (Other)
  Sender: FDA-Public Use
  Company Number: RU-BAYER-2018-127522

PATIENT
  Sex: Female

DRUGS (2)
  1. QLAIRA [Suspect]
     Active Substance: DIENOGEST\ESTRADIOL VALERATE
     Indication: ENDOMETRIOSIS
  2. QLAIRA [Suspect]
     Active Substance: DIENOGEST\ESTRADIOL VALERATE
     Indication: MENORRHAGIA
     Dosage: 1 DF, QD
     Route: 048
     Dates: start: 201803, end: 201806

REACTIONS (4)
  - Headache [None]
  - Limb discomfort [None]
  - Pain in extremity [None]
  - Libido increased [None]

NARRATIVE: CASE EVENT DATE: 2018
